FAERS Safety Report 5772647-1 (Version None)
Quarter: 2008Q2

REPORT INFORMATION
  Report Type: 
  Country: None (occurrence: None)
  Receive Date: 20080613
  Receipt Date: 20080520
  Transmission Date: 20081010
  Serious: No
  Sender: FDA-Public Use
  Company Number: US-BOEHRINGER INGELHEIM GMBH, GERMANY-2008-BP-07941BP

PATIENT
  Age: 45 Year
  Sex: Female

DRUGS (2)
  1. SPIRIVA [Suspect]
     Indication: ASTHMA
     Dates: start: 20070701, end: 20080519
  2. TEGRETOL [Concomitant]

REACTIONS (15)
  - ANXIETY [None]
  - BACK DISORDER [None]
  - CHEST DISCOMFORT [None]
  - CONTUSION [None]
  - DIARRHOEA [None]
  - DYSPHONIA [None]
  - FEELING ABNORMAL [None]
  - GASTRIC DISORDER [None]
  - HYPERHIDROSIS [None]
  - INCREASED UPPER AIRWAY SECRETION [None]
  - IRRITABILITY [None]
  - MUSCULOSKELETAL CHEST PAIN [None]
  - POLLAKIURIA [None]
  - PRODUCTIVE COUGH [None]
  - WHEEZING [None]
